FAERS Safety Report 8775220 (Version 1)
Quarter: 2012Q4

REPORT INFORMATION
  Report Type: 
  Country: NL (occurrence: NL)
  Receive Date: 20120910
  Receipt Date: 20120910
  Transmission Date: 20130627
  Serious: Yes (Hospitalization)
  Sender: FDA-Public Use
  Company Number: NL-AMGEN-NLDSP2012056467

PATIENT
  Age: 56 Year
  Sex: Female

DRUGS (5)
  1. ENBREL [Suspect]
     Indication: RHEUMATOID ARTHRITIS
     Dosage: 50 mg, weekly
     Dates: start: 20100907
  2. SYMBICORT [Concomitant]
     Dosage: UNK UNK, UNK
  3. CELEBREX [Concomitant]
     Dosage: UNK UNK, UNK
  4. METFORMINE [Concomitant]
     Dosage: UNK UNK, UNK
  5. SIMVASTATIN [Concomitant]
     Dosage: UNK UNK, UNK

REACTIONS (3)
  - Liver function test abnormal [Recovered/Resolved]
  - Renal impairment [Recovered/Resolved]
  - Pneumonia [Recovered/Resolved]
